FAERS Safety Report 8369387-1 (Version None)
Quarter: 2012Q2

REPORT INFORMATION
  Report Type: 
  Country: None (occurrence: None)
  Receive Date: 20120518
  Receipt Date: 20120515
  Transmission Date: 20120825
  Serious: Yes (Death, Life-Threatening, Hospitalization, Other)
  Sender: FDA-Public Use
  Company Number: CH-ABBOTT-12P-151-0935416-00

PATIENT
  Age: 70 Year
  Sex: Male

DRUGS (16)
  1. ATORVASTATIN CALCIUM [Concomitant]
     Indication: PRODUCT USED FOR UNKNOWN INDICATION
     Route: 048
     Dates: end: 20120428
  2. PANTOPRAZOLE [Concomitant]
     Indication: PRODUCT USED FOR UNKNOWN INDICATION
     Route: 048
     Dates: end: 20120428
  3. ISOPTIN [Interacting]
     Dates: start: 20070101
  4. ISOPTIN [Interacting]
     Dates: start: 20100101
  5. LORAZEPAM [Suspect]
     Indication: AGITATION
  6. GABAPENTIN [Concomitant]
     Indication: PRODUCT USED FOR UNKNOWN INDICATION
     Route: 048
     Dates: end: 20120428
  7. CEFTRIAXONE SODIUM [Concomitant]
     Indication: PRODUCT USED FOR UNKNOWN INDICATION
     Route: 042
     Dates: start: 20120319, end: 20120329
  8. ISOPTIN [Interacting]
     Indication: ATRIAL FLUTTER
     Dates: start: 20020101
  9. SPIRONOLACTONE [Concomitant]
     Indication: PRODUCT USED FOR UNKNOWN INDICATION
     Route: 048
     Dates: end: 20120428
  10. TORSEMIDE [Concomitant]
     Indication: PRODUCT USED FOR UNKNOWN INDICATION
     Route: 048
     Dates: end: 20120428
  11. CALCIUM ACETATE [Concomitant]
     Indication: PRODUCT USED FOR UNKNOWN INDICATION
     Route: 048
     Dates: end: 20120428
  12. HEPARIN [Concomitant]
     Indication: PRODUCT USED FOR UNKNOWN INDICATION
     Route: 042
     Dates: start: 20120319, end: 20120428
  13. CLARITHROMYCIN [Interacting]
     Indication: PNEUMONIA BACTERIAL
     Route: 048
     Dates: start: 20120323, end: 20120329
  14. ISOPTIN [Interacting]
     Indication: ATRIAL FIBRILLATION
     Route: 048
     Dates: start: 20120320, end: 20120327
  15. ASPIRIN [Concomitant]
     Indication: PRODUCT USED FOR UNKNOWN INDICATION
     Route: 048
     Dates: end: 20120428
  16. LORAZEPAM [Suspect]
     Indication: RESTLESSNESS
     Route: 048
     Dates: start: 20120327, end: 20120327

REACTIONS (11)
  - RENAL FAILURE ACUTE [None]
  - PNEUMONIA [None]
  - BRADYCARDIA [None]
  - DRUG INTERACTION [None]
  - HYPOXIA [None]
  - AGITATION [None]
  - ATRIOVENTRICULAR BLOCK COMPLETE [None]
  - TOXICITY TO VARIOUS AGENTS [None]
  - OVERDOSE [None]
  - HYPOTENSION [None]
  - SEPSIS [None]
